FAERS Safety Report 7455927-3 (Version None)
Quarter: 2011Q2

REPORT INFORMATION
  Report Type: 
  Country: None (occurrence: None)
  Receive Date: 20110503
  Receipt Date: 20110427
  Transmission Date: 20111010
  Serious: Yes (Other)
  Sender: FDA-Public Use
  Company Number: US-B.I. PHARMACEUTICALS,INC./RIDGEFIELD-2011-BP-10811BP

PATIENT
  Age: 77 Year
  Sex: Female

DRUGS (5)
  1. AMLODIPINE [Concomitant]
  2. SINGULAIR [Concomitant]
  3. SPIRIVA [Concomitant]
  4. MICARDIS HCT [Suspect]
     Indication: HYPERTENSION
     Route: 048
     Dates: start: 20060101, end: 20110301
  5. ADVAIR DISKUS 100/50 [Concomitant]

REACTIONS (3)
  - MUSCLE SPASMS [None]
  - HYPONATRAEMIA [None]
  - LOSS OF CONSCIOUSNESS [None]
